FAERS Safety Report 5097728-X (Version None)
Quarter: 2006Q3

REPORT INFORMATION
  Report Type: 
  Country: None (occurrence: None)
  Receive Date: 20060901
  Receipt Date: 20060814
  Transmission Date: 20061208
  Serious: Yes (Hospitalization, Other)
  Sender: FDA-Public Use
  Company Number: US200608003940

PATIENT
  Age: 47 Year
  Sex: Male
  Weight: 76.2 kg

DRUGS (3)
  1. ZYPREXA [Suspect]
     Indication: BIPOLAR DISORDER
     Dates: start: 19960101, end: 20010101
  2. PROZAC [Concomitant]
  3. INSULIN (INSULIN) [Concomitant]

REACTIONS (8)
  - CEREBRAL DISORDER [None]
  - CONVULSION [None]
  - DIABETES MELLITUS [None]
  - HYPERINSULINISM [None]
  - INJURY [None]
  - METABOLIC DISORDER [None]
  - OBESITY [None]
  - PANCREATITIS [None]
